FAERS Safety Report 6636542-8 (Version None)
Quarter: 2010Q1

REPORT INFORMATION
  Report Type: 
  Country: None (occurrence: None)
  Receive Date: 20100316
  Receipt Date: 20100308
  Transmission Date: 20100710
  Serious: Yes (Death)
  Sender: FDA-Public Use
  Company Number: CH-ABBOTT-10P-151-0623811-00

PATIENT
  Sex: Male
  Weight: 133.7 kg

DRUGS (6)
  1. REDUCTIL [Suspect]
     Indication: OBESITY
     Dates: start: 20080312, end: 20081117
  2. REDUCTIL [Suspect]
     Dates: start: 20081117
  3. CARDURA CR [Concomitant]
     Indication: DRUG USE FOR UNKNOWN INDICATION
     Dosage: FILM COATED
  4. COAPROVEL [Concomitant]
     Indication: DRUG USE FOR UNKNOWN INDICATION
     Dosage: FILM-COATED 300/25
  5. LONITEN [Concomitant]
     Indication: DRUG USE FOR UNKNOWN INDICATION
  6. NEBILET [Concomitant]
     Indication: DRUG USE FOR UNKNOWN INDICATION

REACTIONS (3)
  - ANAL HAEMORRHAGE [None]
  - NEPHROLITHIASIS [None]
  - SLEEP APNOEA SYNDROME [None]
